FAERS Safety Report 21600440 (Version 1)
Quarter: 2022Q4

REPORT INFORMATION
  Report Type: Spontaneous
  Country: US (occurrence: US)
  Receive Date: 20221116
  Receipt Date: 20221116
  Transmission Date: 20230112
  Serious: No
  Sender: FDA-Public Use
  Company Number: US-GSKCCFUS-Case-01554085_AE-87893

PATIENT
  Sex: Female

DRUGS (1)
  1. FLOVENT HFA [Suspect]
     Active Substance: FLUTICASONE PROPIONATE
     Indication: Product used for unknown indication
     Dosage: 220 MICRO UNIT, BID
     Route: 055
     Dates: start: 2022

REACTIONS (1)
  - Device use error [Not Recovered/Not Resolved]

NARRATIVE: CASE EVENT DATE: 20220101
